FAERS Safety Report 18455759 (Version 1)
Quarter: 2020Q4

REPORT INFORMATION
  Report Type: Other
  Country: US (occurrence: US)
  Receive Date: 20201102
  Receipt Date: 20201102
  Transmission Date: 20210114
  Serious: Yes (Hospitalization, Other)
  Sender: FDA-Public Use
  Company Number: US-BIOLOGICAL E. LTD-2093530

PATIENT
  Age: 72 Year
  Sex: Female

DRUGS (2)
  1. RIFAMPIN. [Concomitant]
     Active Substance: RIFAMPIN
     Route: 065
  2. DAPTOMYCIN. [Suspect]
     Active Substance: DAPTOMYCIN
     Indication: STAPHYLOCOCCAL INFECTION
     Route: 042

REACTIONS (3)
  - Incorrect product administration duration [Unknown]
  - Sepsis [Recovered/Resolved]
  - Drug resistance [Recovered/Resolved]
